FAERS Safety Report 10599437 (Version 2)
Quarter: 2015Q1

REPORT INFORMATION
  Report Type: Spontaneous
  Country: SE (occurrence: SE)
  Receive Date: 20141121
  Receipt Date: 20150205
  Transmission Date: 20150720
  Serious: Yes (Other)
  Sender: FDA-Public Use
  Company Number: SE-BAUSCH-BL-2014-008947

PATIENT
  Sex: Female

DRUGS (1)
  1. TROPIKAMID CHAUVIN 0.5% (5 MG/ML) EYE DROPS, SOLUTION, SINGLE DOSE CON [Suspect]
     Active Substance: TROPICAMIDE
     Indication: PRODUCT USED FOR UNKNOWN INDICATION
     Dates: end: 20140821

REACTIONS (1)
  - Glaucoma [Unknown]
